FAERS Safety Report 17348323 (Version 4)
Quarter: 2021Q1

REPORT INFORMATION
  Report Type: Spontaneous
  Country: US (occurrence: US)
  Receive Date: 20200130
  Receipt Date: 20210326
  Transmission Date: 20210419
  Serious: No
  Sender: FDA-Public Use
  Company Number: US-PFIZER INC-2020037603

PATIENT
  Age: 28 Year
  Sex: Female

DRUGS (2)
  1. SOMAVERT [Suspect]
     Active Substance: PEGVISOMANT
     Indication: ACROMEGALY
     Dosage: 40MG LOADING DOSE, SINGLE
     Dates: start: 20200124
  2. SOMAVERT [Suspect]
     Active Substance: PEGVISOMANT
     Dosage: 10 MG, DAILY
     Dates: start: 20200124

REACTIONS (5)
  - Influenza [Unknown]
  - Headache [Unknown]
  - Fatigue [Unknown]
  - Rash [Unknown]
  - Vomiting [Unknown]
